FAERS Safety Report 7608891-8 (Version None)
Quarter: 2011Q3

REPORT INFORMATION
  Report Type: 
  Country: None (occurrence: None)
  Receive Date: 20110713
  Receipt Date: 20110713
  Transmission Date: 20111222
  Serious: Yes (Other)
  Sender: FDA-Public Use
  Company Number: None

PATIENT
  Age: 57 Year
  Sex: Female
  Weight: 108.8633 kg

DRUGS (2)
  1. LAMOTRIGINE [Suspect]
     Indication: MAJOR DEPRESSION
     Dosage: 25MG 1 X DAY ORAL
     Route: 048
     Dates: start: 20110612, end: 20110618
  2. LAMOTRIGINE [Suspect]
     Indication: MAJOR DEPRESSION
     Dosage: 25MG 1 X DAY ORAL
     Route: 048
     Dates: start: 20110618

REACTIONS (2)
  - HEADACHE [None]
  - RASH [None]
